FAERS Safety Report 20183582 (Version 1)
Quarter: 2021Q4

REPORT INFORMATION
  Report Type: Spontaneous
  Country: US (occurrence: US)
  Receive Date: 20211214
  Receipt Date: 20211214
  Transmission Date: 20220304
  Serious: Yes (Other)
  Sender: FDA-Public Use
  Company Number: US-ABBVIE-21K-163-4159932-00

PATIENT
  Age: 74 Year
  Sex: Male
  Weight: 67.58 kg

DRUGS (24)
  1. IMBRUVICA [Suspect]
     Active Substance: IBRUTINIB
     Indication: Chronic lymphocytic leukaemia
     Route: 048
     Dates: start: 20181005, end: 20190131
  2. IMBRUVICA [Suspect]
     Active Substance: IBRUTINIB
     Route: 048
     Dates: start: 20190201, end: 20190515
  3. VENETOCLAX [Concomitant]
     Active Substance: VENETOCLAX
     Indication: Chronic lymphocytic leukaemia
     Dates: start: 20190522, end: 20190528
  4. VENETOCLAX [Concomitant]
     Active Substance: VENETOCLAX
     Dates: start: 20190529, end: 20190604
  5. VENETOCLAX [Concomitant]
     Active Substance: VENETOCLAX
     Route: 048
     Dates: start: 20190612, end: 20190618
  6. VENETOCLAX [Concomitant]
     Active Substance: VENETOCLAX
     Route: 048
     Dates: start: 20190619, end: 20190814
  7. VENETOCLAX [Concomitant]
     Active Substance: VENETOCLAX
     Route: 048
     Dates: start: 20190904, end: 20191023
  8. VENETOCLAX [Concomitant]
     Active Substance: VENETOCLAX
     Route: 048
     Dates: start: 20191031, end: 20191218
  9. VENETOCLAX [Concomitant]
     Active Substance: VENETOCLAX
     Route: 048
     Dates: start: 20200228, end: 20200522
  10. FOSAMAX PLUS D [Concomitant]
     Active Substance: ALENDRONATE SODIUM\CHOLECALCIFEROL
     Indication: Osteoporosis
     Route: 048
     Dates: start: 2013
  11. ALLOPURINOL [Concomitant]
     Active Substance: ALLOPURINOL
     Indication: Gout
     Route: 048
     Dates: start: 20180926, end: 20181026
  12. ATORVASTATIN CALCIUM [Concomitant]
     Active Substance: ATORVASTATIN CALCIUM
     Indication: Coronary artery occlusion
     Dates: start: 2016
  13. VITAMIN D3 [Concomitant]
     Active Substance: CHOLECALCIFEROL
     Indication: Osteoporosis
     Route: 048
     Dates: start: 2016
  14. ASPIRIN\CLOPIDOGREL BISULFATE [Concomitant]
     Active Substance: ASPIRIN\CLOPIDOGREL BISULFATE
     Indication: Cardiac disorder
     Route: 042
     Dates: start: 2016
  15. VITAMINS [Concomitant]
     Active Substance: VITAMINS
     Indication: Product used for unknown indication
     Route: 048
     Dates: start: 2014
  16. NITROGLYCERIN ABBOXIA [Concomitant]
     Indication: Chest pain
     Route: 048
     Dates: start: 2016
  17. ZOFRAN [Concomitant]
     Active Substance: ONDANSETRON HYDROCHLORIDE
     Indication: Nausea
     Route: 048
     Dates: start: 201810, end: 201810
  18. DELTASONE [Concomitant]
     Active Substance: PREDNISONE
     Indication: Product used for unknown indication
     Route: 048
     Dates: start: 2018, end: 2018
  19. IRON\VITAMINS [Concomitant]
     Active Substance: IRON\VITAMINS
     Indication: Product used for unknown indication
     Route: 048
     Dates: start: 2016, end: 201901
  20. ACYCLOVIR [Concomitant]
     Active Substance: ACYCLOVIR
     Indication: Infection prophylaxis
     Route: 048
     Dates: start: 20190626, end: 20200214
  21. VIAGRA [Concomitant]
     Active Substance: SILDENAFIL CITRATE
     Indication: Erectile dysfunction
     Route: 048
     Dates: start: 20190515
  22. SULFAMETHOXAZOLE AND TRIMETHOPRIM [Concomitant]
     Active Substance: SULFAMETHOXAZOLE\TRIMETHOPRIM
     Indication: Infection prophylaxis
     Route: 048
     Dates: start: 20190626, end: 20200214
  23. TRIAMCINOLONE [Concomitant]
     Active Substance: TRIAMCINOLONE
     Indication: Rash
     Route: 061
     Dates: start: 201902
  24. RITUXIMAB [Concomitant]
     Active Substance: RITUXIMAB
     Indication: Chronic lymphocytic leukaemia
     Route: 042
     Dates: start: 20120626, end: 20191120

REACTIONS (1)
  - Lymphocytosis [Not Recovered/Not Resolved]

NARRATIVE: CASE EVENT DATE: 20190515
